FAERS Safety Report 22998628 (Version 3)
Quarter: 2024Q1

REPORT INFORMATION
  Report Type: Report from Study
  Country: CA (occurrence: CA)
  Receive Date: 20230928
  Receipt Date: 20240117
  Transmission Date: 20240410
  Serious: Yes (Other)
  Sender: FDA-Public Use
  Company Number: CA-JNJFOC-20230944166

PATIENT
  Age: 8 Decade
  Sex: Female

DRUGS (3)
  1. STELARA [Suspect]
     Active Substance: USTEKINUMAB
     Indication: Crohn^s disease
     Route: 058
     Dates: start: 20210902
  2. STELARA [Suspect]
     Active Substance: USTEKINUMAB
     Route: 058
     Dates: start: 20210902
  3. IRON [Suspect]
     Active Substance: IRON
     Indication: Anaemia
     Dosage: THE PATIENT MEDICINE FOR A WEEK
     Route: 048
     Dates: start: 2023, end: 2023

REACTIONS (9)
  - Gastrointestinal viral infection [Recovered/Resolved]
  - Lower respiratory tract infection viral [Not Recovered/Not Resolved]
  - Crohn^s disease [Recovered/Resolved]
  - Dehydration [Recovered/Resolved]
  - Anaemia [Unknown]
  - Nausea [Unknown]
  - Dyspepsia [Unknown]
  - Eructation [Unknown]
  - Tinnitus [Unknown]

NARRATIVE: CASE EVENT DATE: 20220101
